FAERS Safety Report 18932769 (Version 1)
Quarter: 2021Q1

REPORT INFORMATION
  Report Type: Spontaneous
  Country: JP (occurrence: JP)
  Receive Date: 20210224
  Receipt Date: 20210224
  Transmission Date: 20210420
  Serious: Yes (Death, Other)
  Sender: FDA-Public Use
  Company Number: NVSJ2021JP001379

PATIENT
  Age: 86 Year
  Sex: Female

DRUGS (2)
  1. JADENU [Suspect]
     Active Substance: DEFERASIROX
     Indication: APLASTIC ANAEMIA
     Dosage: UNK
     Route: 048
  2. REVOLADE TAB [Suspect]
     Active Substance: ELTROMBOPAG OLAMINE
     Indication: APLASTIC ANAEMIA
     Dosage: UNK
     Route: 048

REACTIONS (3)
  - Dysphagia [Fatal]
  - Concomitant disease aggravated [Fatal]
  - Cerebral infarction [Fatal]
